FAERS Safety Report 6401353-5 (Version None)
Quarter: 2009Q4

REPORT INFORMATION
  Report Type: 
  Country: None (occurrence: None)
  Receive Date: 20091015
  Receipt Date: 20090902
  Transmission Date: 20100525
  Serious: No
  Sender: FDA-Public Use
  Company Number: US-BAYER-200932545NA

PATIENT
  Sex: Female

DRUGS (1)
  1. MIRENA [Suspect]
     Indication: MENSTRUAL DISORDER
     Dosage: CONTINUOUS
     Route: 015
     Dates: start: 20090701

REACTIONS (13)
  - ABDOMINAL PAIN [None]
  - ACNE [None]
  - AFFECT LABILITY [None]
  - BREAST PAIN [None]
  - BURNING SENSATION [None]
  - CYST [None]
  - DECREASED ACTIVITY [None]
  - LOSS OF LIBIDO [None]
  - NAUSEA [None]
  - PAIN [None]
  - VULVOVAGINAL BURNING SENSATION [None]
  - VULVOVAGINAL PAIN [None]
  - WEIGHT INCREASED [None]
